FAERS Safety Report 26204311 (Version 1)
Quarter: 2025Q4

REPORT INFORMATION
  Report Type: Spontaneous
  Country: US (occurrence: US)
  Receive Date: 20251226
  Receipt Date: 20251226
  Transmission Date: 20260118
  Serious: No
  Sender: BAYER HEALTHCARE PHARMACEUTICALS INC.
  Company Number: US-BAYER-2025A167927

PATIENT
  Age: 4 Month
  Sex: Male

DRUGS (4)
  1. ADEMPAS [Suspect]
     Active Substance: RIOCIGUAT
     Indication: Pulmonary arterial hypertension
  2. EPINEPHRINE [Concomitant]
     Active Substance: EPINEPHRINE
  3. TREPROSTINIL [Concomitant]
     Active Substance: TREPROSTINIL
  4. SILDENAFIL [Concomitant]
     Active Substance: SILDENAFIL

REACTIONS (2)
  - Product use issue [None]
  - Product prescribing issue [None]
